FAERS Safety Report 6822333-1 (Version None)
Quarter: 2010Q3

REPORT INFORMATION
  Report Type: 
  Country: None (occurrence: None)
  Receive Date: 20100707
  Receipt Date: 20100707
  Transmission Date: 20110219
  Serious: Yes (Other)
  Sender: FDA-Public Use
  Company Number: None

PATIENT
  Sex: Male
  Weight: 77.1115 kg

DRUGS (1)
  1. ASTELIN [Suspect]
     Indication: RHINITIS
     Dosage: TWO SPRAYS IN EACH NOSTRIL TWICE DAILY NASAL
     Route: 045
     Dates: start: 20080604, end: 20080814

REACTIONS (5)
  - INFLAMMATION [None]
  - LETHARGY [None]
  - LICHEN PLANUS [None]
  - PAIN [None]
  - RHEUMATOID ARTHRITIS [None]
